FAERS Safety Report 9205096 (Version 1)
Quarter: 2013Q2

REPORT INFORMATION
  Report Type: Spontaneous
  Country: US (occurrence: None)
  Receive Date: 20130401
  Receipt Date: 20130401
  Transmission Date: 20140414
  Serious: Yes (Disabling, Other)
  Sender: FDA-Public Use
  Company Number: None

PATIENT
  Age: 20 Year
  Sex: Male
  Weight: 68.04 kg

DRUGS (1)
  1. SOLODYN [Suspect]
     Indication: ACNE
     Route: 048
     Dates: start: 20090102, end: 20100120

REACTIONS (1)
  - Alopecia [None]
